FAERS Safety Report 9167996 (Version 3)
Quarter: 2013Q2

REPORT INFORMATION
  Report Type: Report from Study
  Country: JP (occurrence: JP)
  Receive Date: 20130318
  Receipt Date: 20130621
  Transmission Date: 20140414
  Serious: Yes (Death, Hospitalization, Other)
  Sender: FDA-Public Use
  Company Number: JP-ASTELLAS-2013US002876

PATIENT
  Age: 61 Year
  Sex: Male

DRUGS (29)
  1. ERLOTINIB TABLET [Suspect]
     Indication: ADENOCARCINOMA PANCREAS
     Dosage: 100 MG, UID/QD
     Route: 048
     Dates: start: 20120719, end: 20120801
  2. ERLOTINIB TABLET [Suspect]
     Dosage: 100 MG, UID/QD
     Route: 048
     Dates: start: 20120808, end: 20130117
  3. GEMCITABINE HYDROCHLORIDE [Suspect]
     Indication: ADENOCARCINOMA PANCREAS
     Dosage: 742 MG/M2, UID/QD
     Route: 041
     Dates: start: 20120718, end: 20120718
  4. GEMCITABINE HYDROCHLORIDE [Suspect]
     Dosage: 742 MG/M2, UID/QD
     Route: 041
     Dates: start: 20120725, end: 20120725
  5. GEMCITABINE HYDROCHLORIDE [Suspect]
     Dosage: 494 MG/M2, UID/QD
     Route: 041
     Dates: start: 20120810, end: 20120810
  6. GEMCITABINE HYDROCHLORIDE [Suspect]
     Dosage: 494 MG/M2, UID/QD
     Route: 041
     Dates: start: 20120824, end: 20120824
  7. GEMCITABINE HYDROCHLORIDE [Suspect]
     Dosage: 310 MG/M2, UID/QD
     Route: 041
     Dates: start: 20120831, end: 20120831
  8. GEMCITABINE HYDROCHLORIDE [Suspect]
     Dosage: 250 MG/M2, UID/QD
     Route: 041
     Dates: start: 20120907, end: 20120907
  9. GEMCITABINE HYDROCHLORIDE [Suspect]
     Dosage: 250 MG/M2, UID/QD
     Route: 041
     Dates: start: 20120921, end: 20120921
  10. GEMCITABINE HYDROCHLORIDE [Suspect]
     Dosage: 250 MG/M2, UID/QD
     Route: 041
     Dates: start: 20120928, end: 20120928
  11. GEMCITABINE HYDROCHLORIDE [Suspect]
     Dosage: 250 MG/M2, UID/QD
     Route: 041
     Dates: start: 20121005, end: 20121005
  12. GEMCITABINE HYDROCHLORIDE [Suspect]
     Dosage: 250 MG/M2, UID/QD
     Route: 041
     Dates: start: 20121019, end: 20121019
  13. GEMCITABINE HYDROCHLORIDE [Suspect]
     Dosage: 250 MG/M2, UID/QD
     Route: 041
     Dates: start: 20121026, end: 20121026
  14. GEMCITABINE HYDROCHLORIDE [Suspect]
     Dosage: 250 MG/M2, UID/QD
     Route: 041
     Dates: start: 20121102, end: 20121102
  15. GEMCITABINE HYDROCHLORIDE [Suspect]
     Dosage: 250 MG/M2, UID/QD
     Route: 041
     Dates: start: 20121116, end: 20121116
  16. GEMCITABINE HYDROCHLORIDE [Suspect]
     Dosage: 250 MG/M2, UID/QD
     Route: 041
     Dates: start: 20121130, end: 20121130
  17. GEMCITABINE HYDROCHLORIDE [Suspect]
     Dosage: 250 MG/M2, UID/QD
     Route: 041
     Dates: start: 20121221, end: 20121221
  18. GEMCITABINE HYDROCHLORIDE [Suspect]
     Dosage: 250 MG/M2, UID/QD
     Route: 041
     Dates: start: 20121228, end: 20121228
  19. LOXOPROFEN [Concomitant]
     Indication: PRODUCT USED FOR UNKNOWN INDICATION
     Dosage: 120 MG, UID/QD
     Route: 048
     Dates: start: 20120808
  20. ACINON [Concomitant]
     Indication: PRODUCT USED FOR UNKNOWN INDICATION
     Dosage: 300 MG, UID/QD
     Route: 048
     Dates: start: 20120808
  21. HIRUDOID                           /00723701/ [Concomitant]
     Indication: PROPHYLAXIS
     Dosage: UNK
     Route: 062
     Dates: start: 20120719, end: 20130104
  22. ALMETA [Concomitant]
     Indication: PRODUCT USED FOR UNKNOWN INDICATION
     Dosage: UNK
     Route: 062
     Dates: start: 20120725
  23. MIYARI BACTERIA [Concomitant]
     Indication: PRODUCT USED FOR UNKNOWN INDICATION
     Dosage: 3 G, UID/QD
     Route: 048
     Dates: start: 20121005, end: 20130131
  24. OXYCONTIN [Concomitant]
     Indication: PRODUCT USED FOR UNKNOWN INDICATION
     Dosage: 10 MG, UID/QD
     Route: 048
     Dates: start: 20130115, end: 20130208
  25. OXYCONTIN [Concomitant]
     Dosage: 20 MG, UID/QD
     Route: 048
     Dates: start: 20130209, end: 20130306
  26. OXINORM                            /00045603/ [Concomitant]
     Indication: PRODUCT USED FOR UNKNOWN INDICATION
     Dosage: 2.5 MG, PRN
     Route: 048
     Dates: start: 20130115, end: 20130306
  27. NOVAMIN                            /00013304/ [Concomitant]
     Indication: PRODUCT USED FOR UNKNOWN INDICATION
     Dosage: 20 MG, UID/QD
     Route: 048
     Dates: start: 20130115, end: 20130118
  28. LASIX                              /00032601/ [Concomitant]
     Indication: PRODUCT USED FOR UNKNOWN INDICATION
     Dosage: 40 MG, UID/QD
     Route: 048
     Dates: start: 20130301, end: 20130306
  29. FENTOS [Concomitant]
     Indication: PRODUCT USED FOR UNKNOWN INDICATION
     Dosage: 1 MG, UID/QD
     Route: 062
     Dates: start: 20130307, end: 20130307

REACTIONS (8)
  - C-reactive protein increased [Not Recovered/Not Resolved]
  - Malignant neoplasm progression [Fatal]
  - Hepatic function abnormal [Not Recovered/Not Resolved]
  - Blood bilirubin increased [Not Recovered/Not Resolved]
  - Blood urea increased [Not Recovered/Not Resolved]
  - C-reactive protein increased [Recovered/Resolved]
  - Platelet count decreased [Recovered/Resolved]
  - Hyperkalaemia [Recovered/Resolved]
